FAERS Safety Report 6074135-4 (Version None)
Quarter: 2009Q1

REPORT INFORMATION
  Report Type: 
  Country: None (occurrence: None)
  Receive Date: 20090211
  Receipt Date: 20090205
  Transmission Date: 20090719
  Serious: Yes (Other)
  Sender: FDA-Public Use
  Company Number: B0558613A

PATIENT
  Age: 60 Year
  Sex: Male

DRUGS (2)
  1. REQUIP [Suspect]
     Indication: PARKINSON'S DISEASE
     Dosage: 8MG PER DAY
     Route: 065
     Dates: start: 20090101, end: 20090101
  2. ANTI-PARKINSON'S DISEASE MEDICATION [Concomitant]

REACTIONS (4)
  - CONDITION AGGRAVATED [None]
  - DRUG INEFFECTIVE [None]
  - HYPOKINESIA [None]
  - MUSCLE RIGIDITY [None]
